FAERS Safety Report 8454789-5 (Version None)
Quarter: 2012Q2

REPORT INFORMATION
  Report Type: 
  Country: None (occurrence: None)
  Receive Date: 20120621
  Receipt Date: 20120612
  Transmission Date: 20120825
  Serious: Yes (Hospitalization)
  Sender: FDA-Public Use
  Company Number: CA-JNJFOC-20120606603

PATIENT
  Age: 31 Year
  Sex: Male
  Weight: 60.33 kg

DRUGS (1)
  1. NICORETTE [Suspect]
     Indication: SMOKING CESSATION THERAPY
     Dosage: 1 IN THE AM AND 1 IN PM
     Route: 048
     Dates: start: 20120609, end: 20120609

REACTIONS (4)
  - ANGINA PECTORIS [None]
  - HYPERSENSITIVITY [None]
  - SWELLING FACE [None]
  - RESPIRATORY DISORDER [None]
